FAERS Safety Report 10245290 (Version 2)
Quarter: 2014Q2

REPORT INFORMATION
  Report Type: Spontaneous
  Country: IT (occurrence: IT)
  Receive Date: 20140618
  Receipt Date: 20140618
  Transmission Date: 20141212
  Serious: Yes (Other)
  Sender: FDA-Public Use
  Company Number: IT-PFIZER INC-2014164102

PATIENT
  Age: 70 Year
  Sex: Female

DRUGS (2)
  1. AMOXICILLIN TRIHYDRATE [Suspect]
     Dosage: UNK
  2. IBUPROFEN [Suspect]
     Dosage: UNK

REACTIONS (1)
  - Anaphylactic shock [Unknown]
